FAERS Safety Report 6124530-X (Version None)
Quarter: 2009Q1

REPORT INFORMATION
  Report Type: 
  Country: None (occurrence: None)
  Receive Date: 20090319
  Receipt Date: 20090311
  Transmission Date: 20090719
  Serious: Yes (Hospitalization)
  Sender: FDA-Public Use
  Company Number: ID-ELI_LILLY_AND_COMPANY-ID200903002898

PATIENT
  Sex: Female

DRUGS (3)
  1. LISPRO [Suspect]
     Indication: DIABETES MELLITUS
     Dosage: 30 IU, EACH MORNING
     Route: 058
     Dates: start: 20090302, end: 20090311
  2. LISPRO [Suspect]
     Dosage: 24 IU, EACH EVENING
     Route: 058
     Dates: start: 20090302, end: 20090311
  3. INSULIN, HUMAN [Suspect]
     Indication: DIABETES MELLITUS
     Dates: start: 20090311, end: 20090301

REACTIONS (2)
  - HYPERSENSITIVITY [None]
  - OEDEMA [None]
